FAERS Safety Report 7380056-7 (Version None)
Quarter: 2011Q1

REPORT INFORMATION
  Report Type: 
  Country: None (occurrence: None)
  Receive Date: 20110324
  Receipt Date: 20110324
  Transmission Date: 20110831
  Serious: Yes (Hospitalization)
  Sender: FDA-Public Use
  Company Number: None

PATIENT
  Age: 65 Year
  Sex: Male
  Weight: 75 kg

DRUGS (14)
  1. MYCOPHENOLATE MEFETIL [Concomitant]
  2. ASPIRIN [Concomitant]
  3. FAMOTIDINE [Concomitant]
  4. MAGNESIUM LACTATE [Concomitant]
  5. CASODEX [Concomitant]
  6. PANTOPRAZOLE [Concomitant]
  7. METHYLPREDNISOLONE [Concomitant]
  8. REGULAR INSULIN [Concomitant]
  9. MACROBID [Concomitant]
  10. CALCIUM WITH VITAMIN D [Concomitant]
  11. FIRMAGON [Suspect]
     Indication: PROSTATE CANCER
     Dosage: 240 MG 120MG AT 2 SITES SQ   ONE TIME
     Route: 058
  12. TACROLIMUS [Concomitant]
  13. ALLOPURINOL [Concomitant]
  14. SIMVASTATIN [Concomitant]

REACTIONS (7)
  - ABDOMINAL PAIN [None]
  - INJECTION SITE INFLAMMATION [None]
  - WHITE BLOOD CELL COUNT INCREASED [None]
  - HERNIA [None]
  - INTESTINAL OBSTRUCTION [None]
  - INJECTION SITE PAIN [None]
  - BLOOD CREATININE INCREASED [None]
